FAERS Safety Report 25799096 (Version 9)
Quarter: 2025Q4

REPORT INFORMATION
  Report Type: Report from Study
  Country: CA (occurrence: CA)
  Receive Date: 20250913
  Receipt Date: 20251204
  Transmission Date: 20260117
  Serious: Yes (Death, Hospitalization, Other)
  Sender: ABBVIE
  Company Number: CA-ABBVIE-6457004

PATIENT
  Age: 69 Year
  Sex: Male

DRUGS (2)
  1. VYALEV [Suspect]
     Active Substance: FOSCARBIDOPA\FOSLEVODOPA
     Indication: Product used for unknown indication
     Dosage: 2 VIALS?LAST ADMIN DATE 2025
     Route: 058
     Dates: start: 20250721
  2. VYALEV [Suspect]
     Active Substance: FOSCARBIDOPA\FOSLEVODOPA
     Dosage: 2,400 MG FOSLEVODOPA/120 MG FOSCARBIDOPA OR 1,700 MG LEVODOPA/90 MG CARBIDOPA?BASE CONTINUOUS INF...
     Route: 058
     Dates: start: 2025

REACTIONS (10)
  - Death [Fatal]
  - Vomiting [Recovered/Resolved]
  - Diarrhoea [Recovered/Resolved]
  - Asthenia [Unknown]
  - Pneumonia aspiration [Recovered/Resolved]
  - Device defective [Recovered/Resolved]
  - Pneumonia [Unknown]
  - Pulmonary embolism [Unknown]
  - Dysphagia [Unknown]
  - Pulmonary embolism [Recovered/Resolved]

NARRATIVE: CASE EVENT DATE: 20250101
